FAERS Safety Report 24141024 (Version 1)
Quarter: 2024Q3

REPORT INFORMATION
  Report Type: Spontaneous
  Country: CN (occurrence: CN)
  Receive Date: 20240726
  Receipt Date: 20240726
  Transmission Date: 20241017
  Serious: Yes (Hospitalization)
  Sender: PFIZER
  Company Number: CN-REMEGEN-HQRC048202401405

PATIENT
  Age: 80 Year
  Sex: Male
  Weight: 46 kg

DRUGS (11)
  1. DISITAMAB VEDOTIN [Suspect]
     Active Substance: DISITAMAB VEDOTIN
     Indication: Retroperitoneal cancer
     Dosage: 120 MILLIGRAM, SINGLE
     Route: 041
     Dates: start: 20240601, end: 20240601
  2. DISITAMAB VEDOTIN [Suspect]
     Active Substance: DISITAMAB VEDOTIN
     Indication: Transitional cell carcinoma
  3. PIPERACILLIN SODIUM\TAZOBACTAM SODIUM [Suspect]
     Active Substance: PIPERACILLIN SODIUM\TAZOBACTAM SODIUM
     Indication: Infection
     Dosage: 4.5 GRAM, TID
     Route: 041
     Dates: start: 20240625, end: 20240708
  4. ESOMEPRAZOLE SODIUM [Suspect]
     Active Substance: ESOMEPRAZOLE SODIUM
     Indication: Hyperchlorhydria
     Dosage: 40 MILLIGRAM, BID
     Route: 041
     Dates: start: 20240611, end: 20240709
  5. GLUTATHIONE [Suspect]
     Active Substance: GLUTATHIONE
     Indication: Liver disorder
     Dosage: 1.2 GRAM, QD
     Route: 041
     Dates: start: 20240612, end: 20240709
  6. TORIPALIMAB [Suspect]
     Active Substance: TORIPALIMAB
     Indication: Retroperitoneal cancer
     Dosage: 160 MILLIGRAM, SINGLE
     Route: 042
     Dates: start: 20240601, end: 20240601
  7. TORIPALIMAB [Suspect]
     Active Substance: TORIPALIMAB
     Indication: Transitional cell carcinoma
  8. ISOSORBIDE MONONITRATE [Concomitant]
     Active Substance: ISOSORBIDE MONONITRATE
     Indication: Arteriosclerosis coronary artery
     Dosage: 20 MILLIGRAM, TID
     Route: 048
     Dates: start: 20240612, end: 20240709
  9. PINAVERIUM BROMIDE [Concomitant]
     Active Substance: PINAVERIUM BROMIDE
     Indication: Pain
     Dosage: 50 MILLIGRAM, TID
     Route: 048
     Dates: start: 20240611, end: 20240709
  10. SPIRONOLACTONE [Concomitant]
     Active Substance: SPIRONOLACTONE
     Indication: Polyuria
     Dosage: 20 MILLIGRAM, QD
     Route: 048
     Dates: start: 20240621, end: 20240709
  11. FUROSEMIDE [Concomitant]
     Active Substance: FUROSEMIDE
     Indication: Polyuria
     Dosage: 20 MILLIGRAM, QD
     Route: 048
     Dates: start: 20240621, end: 20240709

REACTIONS (2)
  - Drug eruption [Not Recovered/Not Resolved]
  - White blood cell count decreased [Not Recovered/Not Resolved]

NARRATIVE: CASE EVENT DATE: 20240709
